FAERS Safety Report 5847288-8 (Version None)
Quarter: 2008Q3

REPORT INFORMATION
  Report Type: 
  Country: None (occurrence: None)
  Receive Date: 20080815
  Receipt Date: 20080801
  Transmission Date: 20090109
  Serious: Yes (Disabling, Other)
  Sender: FDA-Public Use
  Company Number: PL-GENENTECH-263780

PATIENT
  Sex: Female

DRUGS (3)
  1. MABTHERA [Suspect]
     Indication: RHEUMATOID ARTHRITIS
     Dosage: 1000 MG, UNK
     Route: 042
     Dates: start: 20071212, end: 20071227
  2. METHYLPREDNISOLONE 16MG TAB [Suspect]
     Indication: RHEUMATOID ARTHRITIS
     Dosage: 6 MG, UNK
     Route: 048
     Dates: start: 20060622
  3. METHOTREXATE [Concomitant]
     Indication: DRUG USE FOR UNKNOWN INDICATION
     Dosage: UNK
     Dates: start: 20071206

REACTIONS (1)
  - OSTEONECROSIS [None]
